FAERS Safety Report 4759295-7 (Version None)
Quarter: 2005Q3

REPORT INFORMATION
  Report Type: 
  Country: None (occurrence: None)
  Receive Date: 20050831
  Receipt Date: 20050816
  Transmission Date: 20060218
  Serious: Yes (Hospitalization, Other)
  Sender: FDA-Public Use
  Company Number: GBS050717764

PATIENT
  Age: 74 Year
  Sex: Female
  Weight: 65 kg

DRUGS (7)
  1. YENTREVE (DULOXETINE HYDROCHLORIDE) [Suspect]
     Indication: STRESS INCONTINENCE
     Dosage: 40 MG DAY
     Dates: start: 20050203
  2. ATENOLOL [Concomitant]
  3. ALENDRONIC ACID [Concomitant]
  4. ROSUVASTATIN [Concomitant]
  5. ASPIRIN [Concomitant]
  6. LEVOTHYROXINE SODIUM [Concomitant]
  7. PREDNISOLONE [Concomitant]

REACTIONS (2)
  - DRUG INTOLERANCE [None]
  - GASTROINTESTINAL HAEMORRHAGE [None]
